FAERS Safety Report 19379013 (Version 6)
Quarter: 2021Q3

REPORT INFORMATION
  Report Type: Spontaneous
  Country: US (occurrence: US)
  Receive Date: 20210606
  Receipt Date: 20210824
  Transmission Date: 20211014
  Serious: Yes (Life-Threatening, Hospitalization, Other)
  Sender: FDA-Public Use
  Company Number: US-SUN PHARMACEUTICAL INDUSTRIES LTD-2021R1-299326

PATIENT
  Age: 56 Year
  Sex: Female
  Weight: 56.69 kg

DRUGS (5)
  1. EPOPROSTENOL. [Suspect]
     Active Substance: EPOPROSTENOL
     Dosage: 126 NG/KG/MIN CONTINUOUS
     Route: 042
     Dates: start: 20210408
  2. MACITENTAN [Suspect]
     Active Substance: MACITENTAN
     Indication: PULMONARY ARTERIAL HYPERTENSION
     Dosage: 10 MILLIGRAM, QD (1?2)
     Route: 048
  3. OPSUMIT [Concomitant]
     Active Substance: MACITENTAN
     Indication: PRODUCT USED FOR UNKNOWN INDICATION
     Route: 065
  4. EPOPROSTENOL. [Suspect]
     Active Substance: EPOPROSTENOL
     Dosage: 122 NG/KG/MIN CONTINUOUS
     Route: 042
     Dates: start: 20210408
  5. EPOPROSTENOL. [Suspect]
     Active Substance: EPOPROSTENOL
     Indication: PULMONARY ARTERIAL HYPERTENSION
     Dosage: 126 NG/KG/MIN CONTINUOUS
     Route: 042
     Dates: start: 20210408

REACTIONS (21)
  - Catheter site haemorrhage [Unknown]
  - Drug ineffective [Unknown]
  - Vomiting [Unknown]
  - Dizziness [Unknown]
  - Diarrhoea [Unknown]
  - Dyspnoea [Unknown]
  - Flushing [Unknown]
  - Hyperhidrosis [Unknown]
  - Myalgia [Unknown]
  - Decreased appetite [Unknown]
  - Disease progression [Unknown]
  - Fluid retention [Unknown]
  - Influenza like illness [Unknown]
  - Asthenia [Unknown]
  - Cardiac failure [Unknown]
  - Tachycardia [Unknown]
  - Syncope [Unknown]
  - Pain in jaw [Unknown]
  - Nausea [Unknown]
  - Vascular device infection [Unknown]
  - Therapy interrupted [Unknown]

NARRATIVE: CASE EVENT DATE: 20210630
